FAERS Safety Report 8262554-7 (Version None)
Quarter: 2012Q1

REPORT INFORMATION
  Report Type: 
  Country: None (occurrence: None)
  Receive Date: 20120321
  Receipt Date: 20110920
  Transmission Date: 20120608
  Serious: Yes (Other)
  Sender: FDA-Public Use
  Company Number: 2011SP044465

PATIENT
  Age: 61 Year
  Sex: Male

DRUGS (3)
  1. PEG-INTRON [Suspect]
     Indication: HEPATITIS C
  2. INFERGEN [Suspect]
     Indication: HEPATITIS C
     Dates: start: 20080101
  3. RIBAVIRIN [Suspect]
     Indication: HEPATITIS C

REACTIONS (5)
  - POLYNEUROPATHY [None]
  - ANAEMIA [None]
  - TREATMENT FAILURE [None]
  - OBESITY [None]
  - THROMBOCYTOPENIA [None]
